FAERS Safety Report 9380224 (Version 3)
Quarter: 2013Q3

REPORT INFORMATION
  Report Type: Spontaneous
  Country: US (occurrence: US)
  Receive Date: 20130702
  Receipt Date: 20130910
  Transmission Date: 20140515
  Serious: Yes (Other)
  Sender: FDA-Public Use
  Company Number: US-BAYER-2013-080578

PATIENT
  Age: 76 Year
  Sex: Male
  Weight: 81.63 kg

DRUGS (6)
  1. LEVITRA [Suspect]
     Indication: ERECTILE DYSFUNCTION
     Dosage: 1 DF, PRN, PRIOR TO EVENING MEALS
     Route: 048
     Dates: start: 20130621, end: 20130621
  2. NAPROXEN [Concomitant]
     Dosage: 500 MG, 2/DAY
  3. METFORMIN [Concomitant]
     Dosage: 850 MG, 2/DAY
  4. AMLODIPINE BESYLATE [Concomitant]
     Dosage: 10 MG, UNK
  5. LOSARTAN [Concomitant]
     Dosage: 50 MG, UNK
  6. ASPIRIN [Concomitant]
     Dosage: 81 MG, QD

REACTIONS (1)
  - Dysentery [Recovered/Resolved]
